FAERS Safety Report 18087238 (Version 3)
Quarter: 2021Q2

REPORT INFORMATION
  Report Type: Spontaneous
  Country: JP (occurrence: JP)
  Receive Date: 20200729
  Receipt Date: 20210628
  Transmission Date: 20210717
  Serious: Yes (Death, Hospitalization)
  Sender: FDA-Public Use
  Company Number: JP-TEVA-2020-JP-1805852

PATIENT
  Age: 40 Year
  Sex: Female
  Weight: 52.4 kg

DRUGS (3)
  1. TACROLIMUS. [Suspect]
     Active Substance: TACROLIMUS
     Indication: MYASTHENIA GRAVIS
     Dosage: 3 MILLIGRAM DAILY;
     Route: 048
     Dates: start: 2011
  2. PREDNISOLONE. [Suspect]
     Active Substance: PREDNISOLONE
     Dosage: 7 MILLIGRAM DAILY;
     Route: 048
     Dates: start: 2011
  3. PREDNISOLONE. [Suspect]
     Active Substance: PREDNISOLONE
     Indication: SYSTEMIC LUPUS ERYTHEMATOSUS
     Dosage: INITIAL DOSE NOT STATED
     Route: 048

REACTIONS (9)
  - Central nervous system vasculitis [Fatal]
  - Pneumonia aspiration [Fatal]
  - Brain oedema [Fatal]
  - Cerebral haemorrhage [Fatal]
  - Cardio-respiratory arrest [Fatal]
  - Encephalomyelitis [Fatal]
  - Cerebral infarction [Fatal]
  - Varicella zoster virus infection [Fatal]
  - Brown-Sequard syndrome [Fatal]

NARRATIVE: CASE EVENT DATE: 2017
